FAERS Safety Report 9563825 (Version 1)
Quarter: 2013Q1

REPORT INFORMATION
  Report Type: Spontaneous
  Country: US (occurrence: None)
  Receive Date: 20121212
  Receipt Date: 20121212
  Transmission Date: 20140127
  Serious: No
  Sender: FDA-Public Use
  Company Number: 1209USA001951

PATIENT
  Age: 58 Year
  Sex: Female

DRUGS (3)
  1. PEG-INTRON (PEGINTERFERON ALFA-2B) POWDER FOR INJECTION, 150MICROGRAM [Suspect]
     Indication: HEPATITIS C
     Dates: start: 20120728, end: 20121011
  2. RIBAVIRIN CAPSULES [Suspect]
     Indication: HEPATITIS C
     Dates: start: 20120728, end: 20121011
  3. VICTRELIS (BOCEPREVIR) CAPSULE [Suspect]
     Indication: HEPATITIS C
     Dates: start: 20120825, end: 20121011

REACTIONS (5)
  - Haemorrhoidal haemorrhage [None]
  - Nausea [None]
  - Asthenia [None]
  - Vomiting [None]
  - Diarrhoea [None]
